FAERS Safety Report 20459726 (Version 1)
Quarter: 2022Q1

REPORT INFORMATION
  Report Type: Spontaneous
  Country: IL (occurrence: IL)
  Receive Date: 20220211
  Receipt Date: 20220211
  Transmission Date: 20220424
  Serious: Yes (Hospitalization, Other)
  Sender: FDA-Public Use
  Company Number: IL-ORPHANEU-2022000413

PATIENT

DRUGS (1)
  1. SIGNIFOR LAR [Suspect]
     Active Substance: PASIREOTIDE PAMOATE
     Indication: Acromegaly
     Dosage: 20 MILLIGRAM, EVERY 28 DAYS
     Route: 065
     Dates: start: 20211104, end: 20220130

REACTIONS (4)
  - Renal failure [Recovering/Resolving]
  - Localised oedema [Recovering/Resolving]
  - Cardiac disorder [Recovering/Resolving]
  - Asthenia [Not Recovered/Not Resolved]
